FAERS Safety Report 8604746 (Version 2)
Quarter: 2013Q2

REPORT INFORMATION
  Report Type: Spontaneous
  Country: IT (occurrence: IT)
  Receive Date: 20120608
  Receipt Date: 20130412
  Transmission Date: 20140414
  Serious: Yes (Other)
  Sender: FDA-Public Use
  Company Number: IT-BRISTOL-MYERS SQUIBB COMPANY-16639387

PATIENT
  Age: 48 Year
  Sex: Female

DRUGS (7)
  1. REYATAZ CAPS 300 MG [Suspect]
     Indication: HIV INFECTION
     Route: 048
     Dates: start: 20090409, end: 20120127
  2. VIREAD [Suspect]
     Indication: HIV INFECTION
     Route: 048
     Dates: start: 20030304, end: 20120127
  3. EPIVIR [Suspect]
     Indication: HIV INFECTION
     Dosage: 3APR2002-27JAN12(3586D)
     Route: 048
     Dates: start: 20020304, end: 20120127
  4. LORAZEPAM [Concomitant]
  5. DIBASE [Concomitant]
  6. LEVOPRAID [Concomitant]
  7. ENTACT [Concomitant]

REACTIONS (1)
  - Glomerular filtration rate decreased [Recovering/Resolving]
